FAERS Safety Report 8406913-8 (Version None)
Quarter: 2012Q2

REPORT INFORMATION
  Report Type: 
  Country: None (occurrence: None)
  Receive Date: 20120604
  Receipt Date: 20120529
  Transmission Date: 20120825
  Serious: No
  Sender: FDA-Public Use
  Company Number: US-BAYER-2012-053242

PATIENT
  Sex: Female

DRUGS (2)
  1. NATAZIA [Suspect]
  2. BEYAZ [Suspect]

REACTIONS (4)
  - ABDOMINAL DISTENSION [None]
  - FEELING ABNORMAL [None]
  - MENSTRUATION DELAYED [None]
  - MALAISE [None]
